FAERS Safety Report 7563503-7 (Version None)
Quarter: 2011Q2

REPORT INFORMATION
  Report Type: 
  Country: None (occurrence: None)
  Receive Date: 20110622
  Receipt Date: 20110608
  Transmission Date: 20111010
  Serious: Yes (Hospitalization)
  Sender: FDA-Public Use
  Company Number: IT-PFIZER INC-2011133144

PATIENT

DRUGS (3)
  1. SUTENT [Suspect]
     Indication: RENAL CANCER
     Dosage: 37.5 MG, 1X/DAY
     Route: 048
     Dates: start: 20081001, end: 20091101
  2. IRBESARTAN [Concomitant]
     Dosage: 150 MG, UNK
     Route: 048
  3. NORVASC [Concomitant]
     Dosage: 10 MG, UNK

REACTIONS (3)
  - GENERALISED OEDEMA [None]
  - HYPOTHYROIDISM [None]
  - NEPHROTIC SYNDROME [None]
